FAERS Safety Report 10978823 (Version 1)
Quarter: 2015Q2

REPORT INFORMATION
  Report Type: Spontaneous
  Country: NL (occurrence: NL)
  Receive Date: 20150402
  Receipt Date: 20150402
  Transmission Date: 20150821
  Serious: Yes (Hospitalization)
  Sender: FDA-Public Use
  Company Number: NL-TEVA-550007ISR

PATIENT
  Age: 64 Year
  Sex: Male
  Weight: 80 kg

DRUGS (3)
  1. SIMVASTATINE TABLET 40MG [Concomitant]
     Dosage: 5 MILLIGRAM DAILY; ONCE DAILY ONE PIECE
     Route: 048
     Dates: start: 2014
  2. IBUPROFEN BRUISTABLET 400MG [Suspect]
     Active Substance: IBUPROFEN
     Indication: PAIN
     Dosage: 1600 MILLIGRAM DAILY; TWICE A DAY ONE PIECE
     Route: 048
     Dates: start: 201407, end: 201407
  3. AMLODIPINE TABLET   5MG [Concomitant]
     Dosage: 5 MILLIGRAM DAILY; ONCE DAILY ONE PIECE
     Route: 048
     Dates: start: 2014

REACTIONS (4)
  - Dyspnoea [Recovered/Resolved]
  - Swollen tongue [Recovered/Resolved]
  - Swelling face [None]
  - Lip swelling [None]

NARRATIVE: CASE EVENT DATE: 201407
